FAERS Safety Report 8042098-8 (Version None)
Quarter: 2012Q1

REPORT INFORMATION
  Report Type: 
  Country: None (occurrence: None)
  Receive Date: 20120112
  Receipt Date: 20120105
  Transmission Date: 20120608
  Serious: Yes (Death, Hospitalization, Other)
  Sender: FDA-Public Use
  Company Number: US-CELGENEUS-163-21880-11114178

PATIENT
  Sex: Female

DRUGS (18)
  1. ADENOSINE [Concomitant]
     Route: 065
  2. AMIODARONE HCL [Concomitant]
     Indication: SEPTIC SHOCK
     Route: 065
  3. DECADRON [Concomitant]
     Dosage: 2 MILLIGRAM
     Route: 065
  4. REVLIMID [Suspect]
     Indication: LYMPHOMA
  5. EPINEPHRINE [Concomitant]
     Route: 065
     Dates: start: 20111130, end: 20111130
  6. REVLIMID [Suspect]
     Indication: MYELODYSPLASTIC SYNDROME
     Dosage: 10 MILLIGRAM
     Route: 048
     Dates: start: 20111107, end: 20111128
  7. INSULIN GLARGINE [Concomitant]
     Dosage: SLIDING SCALE
     Route: 065
  8. VANCOMYCIN [Concomitant]
     Dosage: 750 MILLIGRAM
     Route: 041
  9. HUMALOG [Concomitant]
     Dosage: SLIDING SCALE
     Route: 065
  10. LOPERAMIDE [Concomitant]
     Dosage: 2 MILLIGRAM
     Route: 065
  11. LASIX [Concomitant]
     Dosage: 20 MILLIGRAM
     Route: 065
  12. ZOSYN [Concomitant]
     Dosage: 3.375 GRAM
     Route: 041
  13. IV FLUIDS [Concomitant]
     Route: 041
  14. IMODIUM [Concomitant]
     Route: 065
  15. ZOFRAN [Concomitant]
     Dosage: 4 MILLIGRAM
     Route: 065
  16. MIDAZOLAM [Concomitant]
     Dosage: 4 MILLIGRAM
     Route: 065
  17. HYDROCORTISONE [Concomitant]
     Dosage: 50 MILLIGRAM
     Route: 041
  18. FLUCONAZOLE [Concomitant]
     Indication: FUNGAL SEPSIS
     Route: 065

REACTIONS (4)
  - HYPERGLYCAEMIA [None]
  - DEHYDRATION [None]
  - FATIGUE [None]
  - ESCHERICHIA SEPSIS [None]
